FAERS Safety Report 19642545 (Version 4)
Quarter: 2021Q4

REPORT INFORMATION
  Report Type: Report from Study
  Country: KR (occurrence: KR)
  Receive Date: 20210730
  Receipt Date: 20211223
  Transmission Date: 20220303
  Serious: Yes (Hospitalization, Other)
  Sender: FDA-Public Use
  Company Number: KR-TAKEDA-2021TUS047218

PATIENT
  Age: 30 Year
  Sex: Male
  Weight: 62.2 kg

DRUGS (88)
  1. VEDOLIZUMAB [Suspect]
     Active Substance: VEDOLIZUMAB
     Indication: Colitis ulcerative
     Dosage: 300 MILLIGRAM, QD
     Route: 042
     Dates: start: 20210510, end: 20210510
  2. VEDOLIZUMAB [Suspect]
     Active Substance: VEDOLIZUMAB
     Dosage: 300 MILLIGRAM
     Route: 042
     Dates: start: 20210524, end: 20210524
  3. VEDOLIZUMAB [Suspect]
     Active Substance: VEDOLIZUMAB
     Dosage: 300 MILLIGRAM
     Route: 042
     Dates: start: 20210621, end: 20210727
  4. VEDOLIZUMAB [Suspect]
     Active Substance: VEDOLIZUMAB
     Dosage: 300 MILLIGRAM, QD
     Route: 042
     Dates: start: 20210621, end: 20210621
  5. Cavid [Concomitant]
     Dosage: UNK UNK, QD
     Route: 048
     Dates: start: 20200814, end: 20210708
  6. FOTAGEL [Concomitant]
     Indication: Diarrhoea
     Dosage: 20 MILLILITER
     Route: 048
     Dates: start: 20210316, end: 20210707
  7. PENTASA [Concomitant]
     Active Substance: MESALAMINE
     Indication: Diarrhoea
     Dosage: 1 GRAM, BID
     Route: 048
     Dates: start: 20150715, end: 20210708
  8. PENTASA [Concomitant]
     Active Substance: MESALAMINE
     Dosage: 2000 MILLIGRAM
     Route: 048
     Dates: start: 20150715, end: 20210708
  9. ASACOL [Concomitant]
     Active Substance: MESALAMINE
     Indication: Diarrhoea
     Dosage: 500 MILLIGRAM, QD
     Route: 054
     Dates: start: 20150105, end: 20210708
  10. ASACOL [Concomitant]
     Active Substance: MESALAMINE
     Dosage: 500 UNK
     Route: 054
     Dates: start: 20210105, end: 20210708
  11. NORZYME [Concomitant]
     Dosage: UNK UNK, TID
     Route: 048
     Dates: start: 20210715, end: 20210730
  12. NORZYME [Concomitant]
     Dosage: UNK
     Route: 048
     Dates: start: 20211007, end: 20211018
  13. PROBIOTICS NOS [Concomitant]
     Active Substance: PROBIOTICS NOS
     Dosage: UNK UNK, BID
     Route: 048
     Dates: start: 20210715, end: 20210730
  14. PROBIOTICS NOS [Concomitant]
     Active Substance: PROBIOTICS NOS
     Dosage: 20 MILLIGRAM
     Route: 048
     Dates: start: 20211007, end: 20211018
  15. Mypol [Concomitant]
     Dosage: UNK, PRN
     Route: 048
     Dates: start: 20210715, end: 20210730
  16. Mypol [Concomitant]
     Dosage: UNK
     Route: 048
     Dates: start: 20211007, end: 20211008
  17. Mypol [Concomitant]
     Dosage: 3 UNK
     Route: 048
     Dates: start: 20211008, end: 20211018
  18. Pico [Concomitant]
     Dosage: 170 MILLILITER, BID
     Route: 048
     Dates: start: 20210708, end: 20210708
  19. TRAMADOL HYDROCHLORIDE [Concomitant]
     Active Substance: TRAMADOL HYDROCHLORIDE
     Dosage: 50 MILLIGRAM, QD
     Route: 042
     Dates: start: 20210710, end: 20210710
  20. TRAMADOL HYDROCHLORIDE [Concomitant]
     Active Substance: TRAMADOL HYDROCHLORIDE
     Dosage: 50 MILLIGRAM, QD
     Route: 042
     Dates: start: 20211001, end: 20211001
  21. TRAMADOL HYDROCHLORIDE [Concomitant]
     Active Substance: TRAMADOL HYDROCHLORIDE
     Dosage: 50 MILLIGRAM, QD
     Route: 042
     Dates: start: 20211003, end: 20211003
  22. RAMOSETRON HYDROCHLORIDE [Concomitant]
     Active Substance: RAMOSETRON HYDROCHLORIDE
     Dosage: 0.3 MILLIGRAM, QD
     Route: 042
     Dates: start: 20210709, end: 20210709
  23. RAMOSETRON HYDROCHLORIDE [Concomitant]
     Active Substance: RAMOSETRON HYDROCHLORIDE
     Dosage: 0.3 MILLIGRAM, QD
     Route: 042
     Dates: start: 20211001, end: 20211002
  24. NADOXOL [Concomitant]
     Dosage: 2 MILLILITER, BID
     Route: 042
     Dates: start: 20210711, end: 20210711
  25. NADOXOL [Concomitant]
     Dosage: 2 MILLILITER, TID
     Route: 042
     Dates: start: 20210709, end: 20210710
  26. NADOXOL [Concomitant]
     Dosage: 15 MILLIGRAM, TID
     Route: 042
     Dates: start: 20211001, end: 20211003
  27. ZIBOR [Concomitant]
     Dosage: 0.2 MILLILITER, QD
     Route: 058
     Dates: start: 20210709, end: 20210713
  28. METOCLOPRAMIDE HYDROCHLORIDE [Concomitant]
     Active Substance: METOCLOPRAMIDE HYDROCHLORIDE
     Dosage: 2 MILLILITER, TID
     Route: 042
     Dates: start: 20210711, end: 20210713
  29. METOCLOPRAMIDE HYDROCHLORIDE [Concomitant]
     Active Substance: METOCLOPRAMIDE HYDROCHLORIDE
     Dosage: 2 MILLILITER, BID
     Route: 042
     Dates: start: 20210714, end: 20210714
  30. METOCLOPRAMIDE HYDROCHLORIDE [Concomitant]
     Active Substance: METOCLOPRAMIDE HYDROCHLORIDE
     Dosage: 2 MILLILITER, BID
     Route: 042
     Dates: start: 20210710, end: 20210710
  31. METOCLOPRAMIDE HYDROCHLORIDE [Concomitant]
     Active Substance: METOCLOPRAMIDE HYDROCHLORIDE
     Dosage: 10 MILLIGRAM, BID
     Route: 042
     Dates: start: 20211003, end: 20211003
  32. FURTMAN [Concomitant]
     Dosage: 2 MILLILITER, QD
     Route: 042
     Dates: start: 20210713, end: 20210714
  33. AMINO ACIDS\DEXTROSE\ELECTROLYTES NOS\SOYBEAN OIL [Concomitant]
     Active Substance: AMINO ACIDS\DEXTROSE\ELECTROLYTES NOS\SOYBEAN OIL
     Dosage: 1448 MILLILITER, QD
     Route: 042
     Dates: start: 20210713, end: 20210714
  34. Hepasol [Concomitant]
     Dosage: 500 MILLILITER, QD
     Route: 042
     Dates: start: 20210713, end: 20210713
  35. PACETIN [Concomitant]
     Dosage: 1 GRAM, BID
     Route: 042
     Dates: start: 20210709, end: 20210710
  36. PACETIN [Concomitant]
     Dosage: 2 GRAM, QD
     Route: 042
     Dates: start: 20211001, end: 20211001
  37. VITAMINS [Concomitant]
     Active Substance: VITAMINS
     Dosage: UNK
     Route: 042
     Dates: start: 20210713, end: 20210713
  38. VITAMINS [Concomitant]
     Active Substance: VITAMINS
     Dosage: UNK, QD
     Route: 042
     Dates: start: 20210713, end: 20210714
  39. VITAMINS [Concomitant]
     Active Substance: VITAMINS
     Dosage: UNK
     Route: 042
     Dates: start: 20211005, end: 20211006
  40. Xerova [Concomitant]
     Dosage: UNK
     Route: 048
     Dates: start: 20210709, end: 20210714
  41. OFLOXACIN [Concomitant]
     Active Substance: OFLOXACIN
     Dosage: UNK
     Route: 062
     Dates: start: 20210709, end: 20210716
  42. YOOSETRON [Concomitant]
     Dosage: 1.5 MILLILITER, QD
     Route: 042
     Dates: start: 20210709, end: 20210709
  43. YOOSETRON [Concomitant]
     Dosage: 1.5 UNK
     Route: 042
     Dates: start: 20210709, end: 20210710
  44. TABINUL [Concomitant]
     Dosage: 0.4 MILLIGRAM
     Route: 042
     Dates: start: 20210709, end: 20210709
  45. LIDOCAINE HYDROCHLORIDE [Concomitant]
     Active Substance: LIDOCAINE HYDROCHLORIDE
     Dosage: 5 MILLILITER, QD
     Route: 042
     Dates: start: 20210709, end: 20210709
  46. LIDOCAINE HYDROCHLORIDE [Concomitant]
     Active Substance: LIDOCAINE HYDROCHLORIDE
     Dosage: 5 MILLILITER
     Route: 042
     Dates: start: 20211002, end: 20211002
  47. PREDNISOLONE [Concomitant]
     Active Substance: PREDNISOLONE
     Dosage: 10 MILLIGRAM, QD
     Route: 048
     Dates: start: 20210714, end: 20210714
  48. PREDNISOLONE [Concomitant]
     Active Substance: PREDNISOLONE
     Dosage: 5 MILLIGRAM, QD
     Route: 048
     Dates: start: 20210714, end: 20210716
  49. PREDNISOLONE [Concomitant]
     Active Substance: PREDNISOLONE
     Dosage: 20 MILLIGRAM, QD
     Route: 048
     Dates: start: 20210713, end: 20210720
  50. PREDNISOLONE [Concomitant]
     Active Substance: PREDNISOLONE
     Dosage: 15 MILLIGRAM, QD
     Route: 048
     Dates: start: 20210721, end: 20210723
  51. PREDNISOLONE [Concomitant]
     Active Substance: PREDNISOLONE
     Dosage: 20 MILLIGRAM, QD
     Route: 048
     Dates: start: 20210413, end: 20210620
  52. PREDNISOLONE [Concomitant]
     Active Substance: PREDNISOLONE
     Dosage: 15 MILLIGRAM, QD
     Route: 048
     Dates: start: 20210621, end: 20210623
  53. EPHEDRINE [Concomitant]
     Active Substance: EPHEDRINE
     Dosage: 4 PERCENT, QD
     Route: 058
     Dates: start: 20210709, end: 20210709
  54. EPHEDRINE [Concomitant]
     Active Substance: EPHEDRINE
     Dosage: 4 UNK, QD
     Route: 058
     Dates: start: 20211001, end: 20211002
  55. NEOSTIGMINE METHYLSULFATE [Concomitant]
     Active Substance: NEOSTIGMINE METHYLSULFATE
     Dosage: 0.5 MILLIGRAM, QD
     Route: 030
     Dates: start: 20210709, end: 20210709
  56. NEOSTIGMINE METHYLSULFATE [Concomitant]
     Active Substance: NEOSTIGMINE METHYLSULFATE
     Dosage: 5 MILLIGRAM, QD
     Route: 030
     Dates: start: 20210709, end: 20210709
  57. ANEPOL [Concomitant]
     Dosage: 12 MILLILITER, QD
     Route: 042
     Dates: start: 20210709, end: 20210709
  58. ANEPOL [Concomitant]
     Dosage: 100 MILLIGRAM, QD
     Route: 042
     Dates: start: 20210709, end: 20210709
  59. ANEPOL [Concomitant]
     Dosage: UNK
     Route: 042
     Dates: start: 20211002, end: 20211002
  60. FRESOFOL MCT [Concomitant]
     Dosage: 1000 MILLIGRAM, QD
     Route: 042
     Dates: start: 20210709, end: 20210709
  61. FRESOFOL MCT [Concomitant]
     Dosage: UNK UNK, QD
     Route: 042
     Dates: start: 20211001, end: 20211001
  62. ULTIAN [Concomitant]
     Dosage: 5 MILLIGRAM, QD
     Route: 042
     Dates: start: 20210709, end: 20210709
  63. ULTIAN [Concomitant]
     Dosage: 4 MILLIGRAM, QD
     Route: 042
     Dates: start: 20210709, end: 20210709
  64. ROCUMERON [Concomitant]
     Dosage: 5 MILLILITER, QD
     Route: 042
     Dates: start: 20210709, end: 20210709
  65. FENTANYL [Concomitant]
     Active Substance: FENTANYL
     Dosage: UNK UNK, BID
     Route: 042
     Dates: start: 20210709, end: 20210709
  66. FENTANYL [Concomitant]
     Active Substance: FENTANYL
     Dosage: 3.14 MILLIGRAM
     Route: 042
     Dates: start: 20210709, end: 20210710
  67. FENTANYL [Concomitant]
     Active Substance: FENTANYL
     Dosage: 50 MICROGRAM
     Route: 042
     Dates: start: 20211001, end: 20211002
  68. FENTANYL [Concomitant]
     Active Substance: FENTANYL
     Dosage: UNK, QD
     Route: 042
     Dates: start: 20211002, end: 20211002
  69. FENTANYL CITRATE [Concomitant]
     Active Substance: FENTANYL CITRATE
     Dosage: 3.14 MILLIGRAM
     Route: 042
     Dates: start: 20210709, end: 20210709
  70. FREEFOL MCT [Concomitant]
     Dosage: 1000 MILLIGRAM
     Route: 042
     Dates: start: 20210709, end: 20210709
  71. PETHIDIN HCL [Concomitant]
     Dosage: 25 MILLIGRAM, QD
     Route: 042
     Dates: start: 20210709, end: 20210709
  72. PETHIDIN HCL [Concomitant]
     Dosage: 50 MILLIGRAM
     Route: 042
     Dates: start: 20210709, end: 20210709
  73. PETHIDIN HCL [Concomitant]
     Dosage: 50 MILLIGRAM
     Route: 042
     Dates: start: 20210709, end: 20210710
  74. PETHIDIN HCL [Concomitant]
     Dosage: 25 MILLIGRAM, QD
     Route: 042
     Dates: start: 20211001, end: 20211001
  75. PETHIDIN HCL [Concomitant]
     Dosage: 25 MILLIGRAM, BID
     Route: 042
     Dates: start: 20211002, end: 20211003
  76. PETHIDIN HCL [Concomitant]
     Dosage: 25 MILLIGRAM, QD
     Route: 042
     Dates: start: 20211001, end: 20211001
  77. PETHIDIN HCL [Concomitant]
     Dosage: 25 MILLIGRAM
     Route: 042
     Dates: start: 20211002, end: 20211003
  78. ZINC S [Concomitant]
     Dosage: 5 MILLIGRAM, TID
     Route: 042
     Dates: start: 20211001, end: 20211003
  79. ZINC S [Concomitant]
     Dosage: 5 MILLIGRAM, BID
     Route: 042
     Dates: start: 20211004, end: 20211004
  80. ZINC S [Concomitant]
     Dosage: 5 MILLIGRAM, QD
     Route: 042
     Dates: start: 20211005, end: 20211006
  81. ZINC S [Concomitant]
     Dosage: 5 MILLIGRAM, BID
     Route: 042
     Dates: start: 20211007, end: 20211007
  82. GASTER [Concomitant]
     Active Substance: FAMOTIDINE
     Dosage: 20 MILLIGRAM, BID
     Route: 042
     Dates: start: 20210708, end: 20210712
  83. GASTER [Concomitant]
     Active Substance: FAMOTIDINE
     Dosage: 20 MILLIGRAM, QD
     Route: 042
     Dates: start: 20210712, end: 20210713
  84. GASTER [Concomitant]
     Active Substance: FAMOTIDINE
     Dosage: 20 MILLIGRAM, BID
     Route: 042
     Dates: start: 20211001, end: 20211006
  85. AMINO ACIDS\DEXTROSE\ELECTROLYTES NOS\SOYBEAN OIL\VITAMINS [Concomitant]
     Active Substance: AMINO ACIDS\DEXTROSE\ELECTROLYTES NOS\SOYBEAN OIL\VITAMINS
     Dosage: 1450 MILLILITER, QD
     Route: 042
     Dates: start: 20211005, end: 20211006
  86. ULTIVA [Concomitant]
     Active Substance: REMIFENTANIL HYDROCHLORIDE
     Dosage: 1 MILLIGRAM, QD
     Route: 042
     Dates: start: 20211001, end: 20211001
  87. ROCURONIUM BROMIDE [Concomitant]
     Active Substance: ROCURONIUM BROMIDE
     Dosage: 5 MILLILITER, QD
     Route: 042
     Dates: start: 20211001, end: 20211002
  88. BRIDION [Concomitant]
     Active Substance: SUGAMMADEX
     Dosage: 2 MILLILITER, QD
     Route: 042
     Dates: start: 20211001, end: 20211002

REACTIONS (2)
  - Rectal adenoma [Recovered/Resolved]
  - Rectal dysplasia [Recovered/Resolved]

NARRATIVE: CASE EVENT DATE: 20210607
